FAERS Safety Report 20976846 (Version 1)
Quarter: 2022Q2

REPORT INFORMATION
  Report Type: Spontaneous
  Country: CN (occurrence: CN)
  Receive Date: 20220617
  Receipt Date: 20220617
  Transmission Date: 20220720
  Serious: Yes (Other)
  Sender: FDA-Public Use
  Company Number: CN-BAYER-2022A083334

PATIENT
  Age: 53 Year
  Sex: Female

DRUGS (1)
  1. AVELOX [Suspect]
     Active Substance: MOXIFLOXACIN HYDROCHLORIDE
     Indication: Pneumonia
     Dosage: 250 ML, QD
     Route: 041
     Dates: start: 20220509, end: 20220511

REACTIONS (4)
  - Metabolic encephalopathy [Recovering/Resolving]
  - Cerebrovascular accident [Recovering/Resolving]
  - Hallucination [Recovering/Resolving]
  - Aphasia [Recovering/Resolving]

NARRATIVE: CASE EVENT DATE: 20220511
